FAERS Safety Report 7570896-3 (Version None)
Quarter: 2011Q2

REPORT INFORMATION
  Report Type: 
  Country: None (occurrence: None)
  Receive Date: 20110624
  Receipt Date: 20110616
  Transmission Date: 20111010
  Serious: Yes (Hospitalization)
  Sender: FDA-Public Use
  Company Number: ES-MPIJNJ-2011-02058

PATIENT

DRUGS (3)
  1. VELCADE [Suspect]
     Indication: MULTIPLE MYELOMA
     Dosage: 1.98 MG, UNK
     Route: 042
     Dates: start: 20110411, end: 20110606
  2. PREDNISONE [Suspect]
     Indication: MULTIPLE MYELOMA
     Dosage: 90 MG, UNK
     Route: 048
     Dates: start: 20110411, end: 20110602
  3. MELPHALAN HYDROCHLORIDE [Suspect]
     Indication: MULTIPLE MYELOMA
     Dosage: 14 MG, UNK
     Route: 048
     Dates: start: 20110411, end: 20110602

REACTIONS (2)
  - GASTROINTESTINAL HYPOMOTILITY [None]
  - RESPIRATORY TRACT INFECTION [None]
